FAERS Safety Report 5941772-4 (Version None)
Quarter: 2008Q4

REPORT INFORMATION
  Report Type: 
  Country: None (occurrence: None)
  Receive Date: 20081105
  Receipt Date: 20081030
  Transmission Date: 20090506
  Serious: Yes (Other)
  Sender: FDA-Public Use
  Company Number: PHHY2008DE26968

PATIENT

DRUGS (1)
  1. VOLTAREN [Suspect]
     Indication: HIP SURGERY
     Dosage: 75 MG, UNK
     Route: 048
     Dates: start: 20080101

REACTIONS (1)
  - DRUG DEPENDENCE [None]
